FAERS Safety Report 23333256 (Version 2)
Quarter: 2024Q1

REPORT INFORMATION
  Report Type: Spontaneous
  Country: US (occurrence: US)
  Receive Date: 20231222
  Receipt Date: 20240219
  Transmission Date: 20240410
  Serious: No
  Sender: FDA-Public Use
  Company Number: US-CTI BIOPHARMA-2023US04286

PATIENT

DRUGS (2)
  1. VONJO [Suspect]
     Active Substance: PACRITINIB
     Indication: Myelofibrosis
     Dosage: 100 MG, BID
     Route: 048
     Dates: start: 20231010
  2. VONJO [Suspect]
     Active Substance: PACRITINIB
     Dosage: 200 MG, BID
     Dates: start: 202311

REACTIONS (3)
  - Purpura [Unknown]
  - Incorrect dose administered [Unknown]
  - Dizziness [Not Recovered/Not Resolved]
